FAERS Safety Report 6129511-8 (Version None)
Quarter: 2009Q1

REPORT INFORMATION
  Report Type: 
  Country: None (occurrence: None)
  Receive Date: 20090324
  Receipt Date: 20090313
  Transmission Date: 20090719
  Serious: Yes (Other)
  Sender: FDA-Public Use
  Company Number: GB-ROCHE-621985

PATIENT
  Sex: Male
  Weight: 119.8 kg

DRUGS (8)
  1. ORLISTAT [Suspect]
     Indication: OBESITY
     Route: 048
     Dates: start: 20081125
  2. METFORMIN HCL [Concomitant]
     Route: 048
  3. AMLODIPINE [Concomitant]
     Indication: HYPERTENSION
     Dosage: START DATE: LATE 1990'S
     Route: 048
     Dates: start: 19950101
  4. LEVOTHYROXINE SODIUM [Concomitant]
     Indication: HYPOTHYROIDISM
     Dosage: START DATE: LATE 1990'S
     Route: 048
     Dates: start: 19950101
  5. ASPIRIN [Concomitant]
     Indication: THROMBOSIS PROPHYLAXIS
     Dosage: DRUG REPORTED: ASPRIN
     Route: 048
     Dates: start: 19950101
  6. SIMVASTATIN [Concomitant]
     Route: 048
     Dates: start: 20050101
  7. ISOSORBIDE [Concomitant]
     Route: 048
  8. ACETAMINOPHEN W/ CODEINE [Concomitant]
     Indication: ARTHRITIS
     Dosage: DOSE: 2X30/500 MG
     Route: 048

REACTIONS (1)
  - PERICARDITIS [None]
